FAERS Safety Report 18186271 (Version 2)
Quarter: 2021Q1

REPORT INFORMATION
  Report Type: Report from Study
  Country: JP (occurrence: JP)
  Receive Date: 20200824
  Receipt Date: 20210303
  Transmission Date: 20210419
  Serious: Yes (Other)
  Sender: FDA-Public Use
  Company Number: JP-ASTRAZENECA-2020SF05081

PATIENT
  Age: 78 Year
  Sex: Female

DRUGS (1)
  1. TAGRISSO [Suspect]
     Active Substance: OSIMERTINIB
     Indication: NON-SMALL CELL LUNG CANCER
     Route: 048
     Dates: start: 20181221, end: 20190521

REACTIONS (3)
  - Haemorrhage subcutaneous [Unknown]
  - Interstitial lung disease [Unknown]
  - Nausea [Unknown]

NARRATIVE: CASE EVENT DATE: 20181228
